FAERS Safety Report 4339195-7 (Version None)
Quarter: 2004Q2

REPORT INFORMATION
  Report Type: 
  Country: None (occurrence: None)
  Receive Date: 20040412
  Receipt Date: 20040330
  Transmission Date: 20050107
  Serious: Yes (Hospitalization, Other)
  Sender: FDA-Public Use
  Company Number: NSADSS2002037462

PATIENT
  Age: 37 Year
  Sex: Male

DRUGS (16)
  1. REMICADE [Suspect]
     Indication: CROHN'S DISEASE
     Dosage: 1 IN 1 AS NECESSARY, INTRAVENOUS DRIP
     Route: 041
  2. LOSARTAN (LOSARTAN) [Concomitant]
  3. IRON (IRON) [Concomitant]
  4. MERCAPTOPURINE [Concomitant]
  5. KEFLEX [Concomitant]
  6. DICYCLOMINE [Concomitant]
  7. PREDNISONE [Concomitant]
  8. ALTACE [Concomitant]
  9. PROTONIX [Concomitant]
  10. LIPITOR [Concomitant]
  11. BENTYL [Concomitant]
  12. IMODIUM [Concomitant]
  13. MESALAMINE (MESALAZINE) [Concomitant]
  14. FISH OIL (FISH OIL) [Concomitant]
  15. AMBIEN [Concomitant]
  16. TELMISARTAN (TELMISARTAN) [Concomitant]

REACTIONS (20)
  - ABDOMINAL TENDERNESS [None]
  - ARTHRALGIA [None]
  - BLOOD CREATININE INCREASED [None]
  - BLOOD URINE [None]
  - BURNING SENSATION [None]
  - CELLULITIS [None]
  - CHROMATURIA [None]
  - COLONIC POLYP [None]
  - CROHN'S DISEASE [None]
  - DRUG EFFECT DECREASED [None]
  - GASTROINTESTINAL MUCOSAL DISORDER [None]
  - GLOMERULONEPHRITIS PROLIFERATIVE [None]
  - HAEMATOCRIT DECREASED [None]
  - HENOCH-SCHONLEIN PURPURA [None]
  - MUCOSAL HAEMORRHAGE [None]
  - MUCOSAL ULCERATION [None]
  - OEDEMA PERIPHERAL [None]
  - PALLOR [None]
  - RECTAL HAEMORRHAGE [None]
  - STAPHYLOCOCCAL INFECTION [None]
